FAERS Safety Report 10374762 (Version 1)
Quarter: 2014Q1

REPORT INFORMATION
  Report Type: Spontaneous
  Country: US (occurrence: None)
  Receive Date: 20140306
  Receipt Date: 20140306
  Transmission Date: 20141002
  Serious: Yes (Hospitalization)
  Sender: FDA-Public Use
  Company Number: 163-21880-13121896

PATIENT
  Age: 72 Year
  Sex: Male
  Weight: 89.81 kg

DRUGS (2)
  1. REVLIMID (LENALIDOMIDE) (25 MILLIGRAMS, CAPSULES) [Suspect]
     Indication: PLASMA CELL MYELOMA
     Route: 048
     Dates: start: 201308
  2. DEXAMETHASONE [Suspect]
     Indication: PLASMA CELL MYELOMA
     Dosage: 1 IN 1 WK, UNK

REACTIONS (1)
  - Local swelling [None]
